FAERS Safety Report 10214797 (Version 1)
Quarter: 2014Q2

REPORT INFORMATION
  Report Type: Spontaneous
  Country: FR (occurrence: FR)
  Receive Date: 20140603
  Receipt Date: 20140603
  Transmission Date: 20141212
  Serious: Yes (Life-Threatening, Other)
  Sender: FDA-Public Use
  Company Number: FR-ELI_LILLY_AND_COMPANY-FR201405008338

PATIENT
  Age: 0 Day
  Sex: 0

DRUGS (3)
  1. CYMBALTA [Suspect]
     Indication: AGORAPHOBIA
     Dosage: 60 MG, QD
     Route: 064
  2. ALDOMET [Suspect]
     Indication: ESSENTIAL HYPERTENSION
     Dosage: UNK UNK, UNKNOWN
     Route: 064
  3. TRANDATE [Suspect]
     Indication: ESSENTIAL HYPERTENSION
     Dosage: 200 MG, TID
     Route: 064

REACTIONS (6)
  - Apgar score abnormal [Recovered/Resolved]
  - Foetal malnutrition [Recovered/Resolved]
  - Tremor [Recovered/Resolved]
  - Neonatal behavioural syndrome [Unknown]
  - Small for dates baby [Recovered/Resolved]
  - Foetal exposure during pregnancy [Unknown]
